FAERS Safety Report 17255521 (Version 1)
Quarter: 2020Q1

REPORT INFORMATION
  Report Type: Spontaneous
  Country: FR (occurrence: FR)
  Receive Date: 20200110
  Receipt Date: 20200110
  Transmission Date: 20200409
  Serious: Yes (Life-Threatening, Hospitalization)
  Sender: FDA-Public Use
  Company Number: FR-TEVA-2020-FR-1164498

PATIENT
  Age: 21 Year
  Sex: Female
  Weight: 55 kg

DRUGS (4)
  1. PAROXETINE. [Suspect]
     Active Substance: PAROXETINE
     Indication: POISONING DELIBERATE
     Dosage: 200 MG PER TOTAL
     Route: 048
     Dates: start: 20191130
  2. LORMETAZEPAM [Suspect]
     Active Substance: LORMETAZEPAM
     Indication: POISONING DELIBERATE
     Dosage: 18 MG PER TOTAL
     Route: 048
     Dates: start: 20191130
  3. TERCIAN 25 MG, COMPRIME PELLICULE SECABLE [Suspect]
     Active Substance: CYAMEMAZINE
     Indication: POISONING DELIBERATE
     Dosage: 100 MG PER TOTAL
     Route: 048
     Dates: start: 20191130
  4. VALIUM [Suspect]
     Active Substance: DIAZEPAM
     Indication: POISONING DELIBERATE
     Dosage: 210 MG PER TOTAL
     Route: 048
     Dates: start: 20191130

REACTIONS (2)
  - Poisoning deliberate [Recovered/Resolved]
  - Somnolence [Recovered/Resolved]

NARRATIVE: CASE EVENT DATE: 20191130
